FAERS Safety Report 5574169-X (Version None)
Quarter: 2007Q4

REPORT INFORMATION
  Report Type: 
  Country: None (occurrence: None)
  Receive Date: 20071221
  Receipt Date: 20071212
  Transmission Date: 20080405
  Serious: Yes (Hospitalization)
  Sender: FDA-Public Use
  Company Number: 2007BI026283

PATIENT
  Sex: Female

DRUGS (2)
  1. AVONEX [Suspect]
     Indication: DRUG USE FOR UNKNOWN INDICATION
     Dosage: IM
     Route: 030
     Dates: start: 20051022, end: 20061201
  2. AVONEX [Suspect]
     Indication: DRUG USE FOR UNKNOWN INDICATION
     Dosage: IM
     Route: 030
     Dates: start: 20070723

REACTIONS (4)
  - CONSTIPATION [None]
  - NAUSEA [None]
  - PAIN [None]
  - VOMITING [None]
